FAERS Safety Report 19972327 (Version 3)
Quarter: 2021Q4

REPORT INFORMATION
  Report Type: Spontaneous
  Country: BG (occurrence: BG)
  Receive Date: 20211020
  Receipt Date: 20211116
  Transmission Date: 20220303
  Serious: Yes (Hospitalization, Other)
  Sender: FDA-Public Use
  Company Number: BG-002147023-NVSC2020BG200300

PATIENT

DRUGS (1)
  1. RUXOLITINIB [Suspect]
     Active Substance: RUXOLITINIB
     Indication: Myelofibrosis
     Dosage: 10 MG, QD
     Route: 048
     Dates: start: 20190703

REACTIONS (7)
  - Anaemia [Not Recovered/Not Resolved]
  - Basophilia [Recovering/Resolving]
  - Pneumonia [Unknown]
  - COVID-19 [Recovered/Resolved with Sequelae]
  - Lymphopenia [Recovering/Resolving]
  - Monocytosis [Recovering/Resolving]
  - Thrombocytopenia [Not Recovered/Not Resolved]

NARRATIVE: CASE EVENT DATE: 20200309
